FAERS Safety Report 9282233 (Version 1)
Quarter: 2013Q2

REPORT INFORMATION
  Report Type: Spontaneous
  Country: US (occurrence: US)
  Receive Date: 20130510
  Receipt Date: 20130510
  Transmission Date: 20140414
  Serious: No
  Sender: FDA-Public Use
  Company Number: US-PFIZER INC-2013140403

PATIENT
  Age: 58 Year
  Sex: Female

DRUGS (9)
  1. GLUCOTROL [Suspect]
     Dosage: 10 MG, 3X/DAY
  2. PROTONIX [Suspect]
     Dosage: 40 MG, 1X/DAY
  3. LIPITOR [Suspect]
     Dosage: 80 MG, 1X/DAY
  4. PLAVIX [Suspect]
     Dosage: UNK
  5. COREG [Suspect]
     Dosage: UNK
  6. COUMADINE [Suspect]
     Dosage: UNK
  7. CLONAZEPAM [Suspect]
     Dosage: UNK
  8. BUSPAR [Suspect]
     Dosage: UNK
  9. LISINOPRIL [Suspect]
     Dosage: UNK

REACTIONS (1)
  - Drug hypersensitivity [Unknown]
